FAERS Safety Report 9929507 (Version 2)
Quarter: 2014Q1

REPORT INFORMATION
  Report Type: Spontaneous
  Country: FR (occurrence: FR)
  Receive Date: 20140227
  Receipt Date: 20140319
  Transmission Date: 20141002
  Serious: Yes (Hospitalization, Other)
  Sender: FDA-Public Use
  Company Number: FR-GLAXOSMITHKLINE-B0971705A

PATIENT
  Age: 70 Year
  Sex: Male

DRUGS (6)
  1. AVODART [Suspect]
     Indication: BENIGN PROSTATIC HYPERPLASIA
     Dosage: .5MG PER DAY
     Route: 048
     Dates: start: 20140207, end: 20140214
  2. AMOXICILLINE [Suspect]
     Indication: URINARY TRACT INFECTION
     Route: 048
     Dates: start: 20140207, end: 20140217
  3. HUMALOG MIX 25 [Concomitant]
     Indication: TYPE 2 DIABETES MELLITUS
     Dosage: 18IU PER DAY
     Route: 065
  4. HALDOL [Concomitant]
     Indication: PRODUCT USED FOR UNKNOWN INDICATION
     Dosage: 50MG EVERY TWO WEEKS
     Route: 030
  5. ALFUZOSINE [Concomitant]
     Indication: PRODUCT USED FOR UNKNOWN INDICATION
     Dosage: 10MG PER DAY
     Route: 048
  6. STAGID [Concomitant]
     Indication: PRODUCT USED FOR UNKNOWN INDICATION
     Dosage: 700MG THREE TIMES PER DAY
     Route: 048
     Dates: end: 20140214

REACTIONS (1)
  - Diabetes mellitus inadequate control [Recovering/Resolving]
